FAERS Safety Report 16032703 (Version 1)
Quarter: 2019Q1

REPORT INFORMATION
  Report Type: Spontaneous
  Country: US (occurrence: US)
  Receive Date: 20190305
  Receipt Date: 20190305
  Transmission Date: 20190418
  Serious: No
  Sender: FDA-Public Use
  Company Number: US-TEVA-2019-US-1009507

PATIENT
  Age: 80 Year
  Sex: Female

DRUGS (3)
  1. VERAPAMIL (MYLAN) [Concomitant]
     Active Substance: VERAPAMIL HYDROCHLORIDE
  2. ATENOLOL TEVA [Suspect]
     Active Substance: ATENOLOL
     Indication: TACHYCARDIA
     Dosage: ONE TABLET IN THE MORNING AND EVENING
     Route: 065
  3. ATENOLOL TEVA [Suspect]
     Active Substance: ATENOLOL
     Dosage: ONE AND A HALF TABLET IN THE MORNING AND EVENING
     Route: 065

REACTIONS (1)
  - Heart rate increased [Unknown]
